FAERS Safety Report 7575248-8 (Version None)
Quarter: 2011Q2

REPORT INFORMATION
  Report Type: 
  Country: None (occurrence: None)
  Receive Date: 20110627
  Receipt Date: 20110615
  Transmission Date: 20111010
  Serious: Yes (Other)
  Sender: FDA-Public Use
  Company Number: ES-PFIZER INC-2011140766

PATIENT
  Age: 89 Year
  Sex: Female

DRUGS (2)
  1. MORPHINE SULFATE [Suspect]
     Indication: PAIN
     Dosage: 10 MG, DAILY
  2. MORPHINE SULFATE [Suspect]
     Indication: PAIN
     Dosage: 10 MG, DAILY
     Route: 048

REACTIONS (5)
  - SOMNOLENCE [None]
  - DEPRESSED LEVEL OF CONSCIOUSNESS [None]
  - CONFUSIONAL STATE [None]
  - OVERDOSE [None]
  - WRONG DRUG ADMINISTERED [None]
